FAERS Safety Report 7027215-0 (Version None)
Quarter: 2010Q4

REPORT INFORMATION
  Report Type: 
  Country: None (occurrence: None)
  Receive Date: 20101004
  Receipt Date: 20100927
  Transmission Date: 20110411
  Serious: Yes (Hospitalization)
  Sender: FDA-Public Use
  Company Number: US-JNJFOC-20100908012

PATIENT
  Sex: Male
  Weight: 43 kg

DRUGS (7)
  1. ETRAVIRINE [Suspect]
     Indication: HIV INFECTION
     Route: 048
  2. TRUVADA [Suspect]
     Indication: HIV INFECTION
     Route: 048
  3. ZOFRAN [Concomitant]
     Route: 048
  4. FAMOTIDINE [Concomitant]
  5. BACTRIM [Concomitant]
     Route: 048
  6. ETHAMBUTOL HYDROCHLORIDE [Concomitant]
  7. AZITHROMYCIN [Concomitant]

REACTIONS (1)
  - VOMITING [None]
